FAERS Safety Report 7026281-6 (Version None)
Quarter: 2010Q4

REPORT INFORMATION
  Report Type: 
  Country: None (occurrence: None)
  Receive Date: 20101004
  Receipt Date: 20100921
  Transmission Date: 20110411
  Serious: Yes (Hospitalization, Other)
  Sender: FDA-Public Use
  Company Number: ES-ELI_LILLY_AND_COMPANY-ES201009006080

PATIENT
  Sex: Male

DRUGS (11)
  1. FORTEO [Suspect]
     Indication: OSTEOPOROSIS
     Dosage: 20 UG, DAILY (1/D)
     Route: 058
     Dates: start: 20100514
  2. INSULINA                           /01223201/ [Concomitant]
     Indication: DIABETES MELLITUS
     Dosage: UNK, 2/D
     Route: 058
  3. ASPIRIN [Concomitant]
     Dosage: UNK, UNKNOWN
     Route: 048
  4. SINTROM [Concomitant]
     Dosage: UNK, UNKNOWN
     Route: 048
  5. ENOXIN [Concomitant]
     Dosage: UNK, UNKNOWN
     Route: 048
  6. SEGURIL [Concomitant]
     Dosage: UNK, UNKNOWN
     Route: 048
  7. TRANGOREX [Concomitant]
     Dosage: UNK, UNKNOWN
     Route: 048
  8. RANITIDINA [Concomitant]
     Dosage: UNK, UNKNOWN
     Route: 048
  9. UROLOSIN [Concomitant]
     Dosage: UNK, UNKNOWN
     Route: 048
  10. ACFOL [Concomitant]
     Dosage: UNK, UNKNOWN
     Route: 048
  11. PARACETAMOL [Concomitant]
     Dosage: UNK, UNKNOWN
     Route: 048

REACTIONS (3)
  - DEVICE BREAKAGE [None]
  - FALL [None]
  - FEMUR FRACTURE [None]
